FAERS Safety Report 4576417-1 (Version None)
Quarter: 2005Q1

REPORT INFORMATION
  Report Type: 
  Country: None (occurrence: None)
  Receive Date: 20050119
  Receipt Date: 20040319
  Transmission Date: 20050727
  Serious: Yes (Hospitalization)
  Sender: FDA-Public Use
  Company Number: A03200400970

PATIENT
  Age: 76 Year
  Sex: Female
  Weight: 88.4514 kg

DRUGS (7)
  1. PLAVIX [Suspect]
     Indication: MYOCARDIAL INFARCTION
     Dosage: 75 MG QD - ORAL
     Route: 048
     Dates: start: 20031223, end: 20040101
  2. ACETYLSALICYLIC ACID [Concomitant]
     Indication: STENT PLACEMENT
  3. NITROGLYCERIN [Concomitant]
  4. AMLODIPINE BESYLATE [Concomitant]
  5. LOSARTAN POTASSIUM [Concomitant]
  6. PRAVASTATIN SODIUM [Concomitant]
  7. DILTIAZEM HYDROCHLORIDE [Concomitant]

REACTIONS (5)
  - ABDOMINAL PAIN [None]
  - CONTUSION [None]
  - NAUSEA [None]
  - RECTAL HAEMORRHAGE [None]
  - VOMITING [None]
